FAERS Safety Report 15123644 (Version 1)
Quarter: 2018Q3

REPORT INFORMATION
  Report Type: Spontaneous
  Country: ES (occurrence: ES)
  Receive Date: 20180710
  Receipt Date: 20180710
  Transmission Date: 20181010
  Serious: Yes (Life-Threatening)
  Sender: FDA-Public Use
  Company Number: ES-TEVA-2018-ES-922198

PATIENT
  Age: 29 Year
  Sex: Male

DRUGS (3)
  1. ESCITALOPRAM [Concomitant]
     Active Substance: ESCITALOPRAM OXALATE
     Indication: DEPRESSION
     Dosage: 10 MILLIGRAM DAILY;
     Route: 048
  2. FINASTERIDE. [Suspect]
     Active Substance: FINASTERIDE
     Indication: ANDROGENETIC ALOPECIA
     Dosage: .8 MILLIGRAM DAILY; OR 8 MG DAILY
     Route: 048
     Dates: start: 20140501, end: 2018
  3. MINOXIDIL (782A) [Concomitant]
     Route: 061

REACTIONS (2)
  - Pulmonary embolism [Recovering/Resolving]
  - Gynaecomastia [Recovering/Resolving]

NARRATIVE: CASE EVENT DATE: 2018
